FAERS Safety Report 13042611 (Version 2)
Quarter: 2017Q4

REPORT INFORMATION
  Report Type: Spontaneous
  Country: FR (occurrence: FR)
  Receive Date: 20161219
  Receipt Date: 20171117
  Transmission Date: 20180320
  Serious: Yes (Hospitalization, Other)
  Sender: FDA-Public Use
  Company Number: FR-MYLANLABS-2016M1055544

PATIENT
  Age: 15 Year
  Sex: Male

DRUGS (2)
  1. PROMETHAZINE [Suspect]
     Active Substance: PROMETHAZINE\PROMETHAZINE HYDROCHLORIDE
     Indication: PRODUCT USED FOR UNKNOWN INDICATION
     Dosage: THREE BLISTER STRIPS OF 10 TABLETS OF 25MG PROMETHAZINE (30 TAB; AS A PART OF PURPLE DRANK COCKTAIL)
     Route: 048
  2. EUPHON                             /00959801/ [Suspect]
     Active Substance: HERBALS
     Indication: PRODUCT USED FOR UNKNOWN INDICATION
     Dosage: 300ML OF EUPHON SYRUP HAVING 1 MG/ML OF CODEINE (AS A PART OF PURPLE DRANK COCKTAIL)
     Route: 048

REACTIONS (3)
  - Anticholinergic syndrome [Recovered/Resolved]
  - Toxicity to various agents [Recovered/Resolved]
  - Drug abuse [Recovered/Resolved]
